FAERS Safety Report 8034442-2 (Version None)
Quarter: 2012Q1

REPORT INFORMATION
  Report Type: 
  Country: None (occurrence: None)
  Receive Date: 20120110
  Receipt Date: 20120102
  Transmission Date: 20120608
  Serious: Yes (Hospitalization, Other)
  Sender: FDA-Public Use
  Company Number: FR-BRISTOL-MYERS SQUIBB COMPANY-16329112

PATIENT
  Age: 89 Year
  Sex: Female

DRUGS (13)
  1. FOSAMAX [Concomitant]
  2. IMOVANE [Concomitant]
  3. ALDACTONE [Concomitant]
  4. COUMADIN [Suspect]
     Route: 048
     Dates: start: 20101013
  5. MIANSERIN [Concomitant]
  6. NITRODERM [Concomitant]
  7. PLAVIX [Suspect]
  8. EQUANIL [Concomitant]
     Dosage: PRODUCT STRENGTH IS 400
  9. CACIT 1000 [Concomitant]
  10. POLYETHYLENE GLYCOL [Concomitant]
  11. FUROSEMIDE [Concomitant]
  12. NEULEPTIL [Concomitant]
  13. ACETAMINOPHEN [Concomitant]

REACTIONS (5)
  - ISCHAEMIC STROKE [None]
  - VIITH NERVE PARALYSIS [None]
  - CARDIAC FAILURE CONGESTIVE [None]
  - APHASIA [None]
  - HYPONATRAEMIA [None]
